FAERS Safety Report 18025123 (Version 1)
Quarter: 2020Q3

REPORT INFORMATION
  Report Type: Spontaneous
  Country: US (occurrence: US)
  Receive Date: 20200715
  Receipt Date: 20200715
  Transmission Date: 20201103
  Serious: No
  Sender: FDA-Public Use
  Company Number: US-PFIZER INC-2020267597

PATIENT
  Age: 60 Year
  Sex: Male

DRUGS (2)
  1. NIFEDIPINE. [Suspect]
     Active Substance: NIFEDIPINE
     Dosage: UNK
  2. LENVIMA [Interacting]
     Active Substance: LENVATINIB
     Indication: METASTASES TO LYMPH NODES
     Dosage: 18 MG, DAILY
     Route: 048
     Dates: start: 20200620

REACTIONS (6)
  - Drug interaction [Unknown]
  - Constipation [Not Recovered/Not Resolved]
  - Swollen tongue [Not Recovered/Not Resolved]
  - Nausea [Recovered/Resolved]
  - Fatigue [Not Recovered/Not Resolved]
  - Erythema [Not Recovered/Not Resolved]
